FAERS Safety Report 25890076 (Version 1)
Quarter: 2025Q4

REPORT INFORMATION
  Report Type: Spontaneous
  Country: JP (occurrence: JP)
  Receive Date: 20251007
  Receipt Date: 20251007
  Transmission Date: 20260118
  Serious: Yes (Other)
  Sender: RANBAXY
  Company Number: JP-SUN PHARMACEUTICAL INDUSTRIES LTD-2025RR-530391

PATIENT
  Age: 56 Year
  Sex: Female

DRUGS (4)
  1. PREDNISOLONE [Suspect]
     Active Substance: PREDNISOLONE
     Indication: B-cell lymphoma
     Dosage: 100 MILLIGRAM, 100 MG/BODY, UNK
     Route: 065
  2. DOXORUBICIN [Suspect]
     Active Substance: DOXORUBICIN
     Indication: B-cell lymphoma
     Dosage: 50 MILLIGRAM/SQ. METER, UNK
     Route: 065
  3. VINCRISTINE [Suspect]
     Active Substance: VINCRISTINE
     Indication: B-cell lymphoma
     Dosage: 1.4 MILLIGRAM/SQ. METER, UNK
     Route: 065
  4. CYCLOPHOSPHAMIDE [Suspect]
     Active Substance: CYCLOPHOSPHAMIDE
     Indication: B-cell lymphoma
     Dosage: 750 MILLIGRAM/SQ. METER, UNK
     Route: 065

REACTIONS (5)
  - Cardiotoxicity [Unknown]
  - Myopericarditis [Unknown]
  - Pericardial calcification [Unknown]
  - Electrocardiogram ST segment elevation [Unknown]
  - Electrocardiogram ST segment depression [Unknown]
